FAERS Safety Report 4379711-2 (Version None)
Quarter: 2004Q2

REPORT INFORMATION
  Report Type: 
  Country: None (occurrence: None)
  Receive Date: 20040614
  Receipt Date: 20010223
  Transmission Date: 20050107
  Serious: Yes (Other)
  Sender: FDA-Public Use
  Company Number: TOS-000625

PATIENT
  Age: 69 Year
  Sex: Male
  Weight: 84.4 kg

DRUGS (7)
  1. TOSITUMOMAB, IODINE I 131 TOSITUMOMAB(TOSITUMOMAB, IODINE I 131 TOSITU [Suspect]
     Indication: NON-HODGKIN'S LYMPHOMA
     Dosage: TOSITUMOMAB 450 MG, INTRAVENOUS
     Route: 042
     Dates: start: 19991027, end: 19991027
  2. TOSITUMOMAB, IODINE I 131, TOSITUMOMAB REGIMEN # 2 [Suspect]
     Dosage: I 131 TOSITUMOMAB 35MG/5.23 MCI, INTRAVENOUS
     Route: 042
     Dates: start: 19991027, end: 19991027
  3. TOSITUMOMAB, IODINE I 131, TOSITUMOMAB REGIMEN # 3 [Suspect]
     Dosage: TOSITUMOMAB 450 MG, INTRAVENOUS
     Route: 042
     Dates: start: 19991103, end: 19991103
  4. TOSITUMOMAB, IODINE I 131, TOSITUMOMAB REGIMEN # 4 [Suspect]
     Dosage: I 131 TOSITUMOMAB 35MG/79.36 MCI, INTRAVENOUS
     Route: 042
     Dates: start: 19991103, end: 19991103
  5. FLUDARABINE PHOSPHATE [Suspect]
     Dosage: CYCLE1: 48 MG, INTRAVENOUS
     Route: 042
     Dates: start: 19990628, end: 19990702
  6. FLUDARABINE PHOSPHATE [Suspect]
     Dosage: CYCLE 2: 48 MG, INTRAVENOUS
     Route: 042
     Dates: start: 19990802, end: 19990806
  7. FLUDARABINE PHOSPHATE [Suspect]
     Dosage: CYCLE 3: 48 MG, INTRAVENOUS
     Route: 042
     Dates: start: 19990906, end: 19990910

REACTIONS (14)
  - ANGIOPATHY [None]
  - BRONCHIECTASIS [None]
  - CELLULITIS [None]
  - CHRONIC MYELOMONOCYTIC LEUKAEMIA [None]
  - DISEASE PROGRESSION [None]
  - LYMPHADENOPATHY [None]
  - LYMPHOEDEMA [None]
  - NASOPHARYNGITIS [None]
  - OEDEMA PERIPHERAL [None]
  - POLYCYSTIC LIVER DISEASE [None]
  - RASH MACULO-PAPULAR [None]
  - RASH PRURITIC [None]
  - SINUSITIS [None]
  - UPPER RESPIRATORY TRACT INFECTION [None]
